FAERS Safety Report 14658054 (Version 2)
Quarter: 2018Q2

REPORT INFORMATION
  Report Type: Report from Study
  Country: US (occurrence: US)
  Receive Date: 20180320
  Receipt Date: 20180510
  Transmission Date: 20180711
  Serious: No
  Sender: FDA-Public Use
  Company Number: US-ALEXION PHARMACEUTICALS INC.-A201802144

PATIENT
  Sex: Male
  Weight: 14.06 kg

DRUGS (2)
  1. SOLIRIS [Suspect]
     Active Substance: ECULIZUMAB
     Dosage: UNK
     Route: 065
  2. SOLIRIS [Suspect]
     Active Substance: ECULIZUMAB
     Indication: ATYPICAL HAEMOLYTIC URAEMIC SYNDROME
     Dosage: UNK
     Route: 065

REACTIONS (5)
  - Dental caries [Unknown]
  - Tooth fracture [Unknown]
  - Bruxism [Unknown]
  - Rash [Recovered/Resolved]
  - Tooth discolouration [Unknown]

NARRATIVE: CASE EVENT DATE: 20180419
